FAERS Safety Report 5965873-X (Version None)
Quarter: 2008Q4

REPORT INFORMATION
  Report Type: 
  Country: None (occurrence: None)
  Receive Date: 20081125
  Receipt Date: 20081113
  Transmission Date: 20090506
  Serious: Yes (Hospitalization)
  Sender: FDA-Public Use
  Company Number: JP-ROCHE-577893

PATIENT
  Sex: Male
  Weight: 53 kg

DRUGS (36)
  1. DENOSINE IV [Suspect]
     Indication: DRUG USE FOR UNKNOWN INDICATION
     Route: 041
     Dates: start: 20060905, end: 20060912
  2. DENOSINE IV [Suspect]
     Route: 041
     Dates: start: 20060925, end: 20061003
  3. CELLCEPT [Suspect]
     Dosage: DOSE INCREASED
     Route: 048
     Dates: start: 20060509, end: 20060509
  4. CELLCEPT [Suspect]
     Dosage: DOSE DECREASED
     Route: 048
     Dates: start: 20060510, end: 20060608
  5. CELLCEPT [Suspect]
     Dosage: DOSE DECREASED
     Route: 048
     Dates: start: 20060609, end: 20060823
  6. CELLCEPT [Suspect]
     Dosage: DOSE DECREASED
     Route: 048
     Dates: start: 20060824, end: 20060831
  7. CELLCEPT [Suspect]
     Dosage: DISCONTINUED
     Route: 048
     Dates: start: 20060901, end: 20060903
  8. BACTRIM [Suspect]
     Indication: PNEUMOCYSTIS JIROVECI PNEUMONIA
     Route: 048
     Dates: start: 20060904
  9. BACTRIM [Suspect]
     Dosage: DOSE INCREASE
     Route: 048
  10. PROGRAF [Suspect]
     Dosage: TREATMENT SWITCHED TO CICLOSPORIN
     Route: 048
     Dates: start: 20060507, end: 20060821
  11. MEDROL [Suspect]
     Route: 048
     Dates: start: 20060509
  12. SIMULECT [Suspect]
     Route: 065
     Dates: start: 20060509, end: 20060509
  13. SIMULECT [Suspect]
     Route: 065
     Dates: start: 20060513, end: 20060513
  14. CYCLOSPORINE [Concomitant]
     Route: 065
     Dates: start: 20060501, end: 20060907
  15. CYCLOSPORINE [Concomitant]
     Route: 065
     Dates: start: 20060908, end: 20060908
  16. CRAVIT [Concomitant]
     Indication: DRUG USE FOR UNKNOWN INDICATION
     Route: 048
     Dates: start: 20060903, end: 20060903
  17. VENOGLOBULIN [Concomitant]
     Route: 041
     Dates: start: 20060904, end: 20060910
  18. VENOGLOBULIN [Concomitant]
     Route: 041
     Dates: start: 20060913, end: 20060918
  19. VENOGLOBULIN [Concomitant]
     Route: 041
     Dates: start: 20060919, end: 20060921
  20. VENOGLOBULIN [Concomitant]
     Route: 041
     Dates: start: 20060922, end: 20060924
  21. CEFOTIAM HYDROCHLORIDE [Concomitant]
     Dates: start: 20060904, end: 20060906
  22. FUNGUARD [Concomitant]
     Indication: DRUG USE FOR UNKNOWN INDICATION
     Route: 041
     Dates: start: 20060905, end: 20060910
  23. MINOCYCLINE HYDROCHLORIDE [Concomitant]
     Indication: DRUG USE FOR UNKNOWN INDICATION
     Dates: start: 20060905, end: 20060908
  24. METHYLPREDNISOLONE SODIUM SUCCINATE [Concomitant]
     Indication: DRUG USE FOR UNKNOWN INDICATION
     Dates: start: 20060906, end: 20060906
  25. METHYLPREDNISOLONE SODIUM SUCCINATE [Concomitant]
     Dates: start: 20060907, end: 20060907
  26. METHYLPREDNISOLONE SODIUM SUCCINATE [Concomitant]
     Dates: start: 20060908, end: 20060908
  27. METHYLPREDNISOLONE SODIUM SUCCINATE [Concomitant]
     Dates: start: 20060909
  28. CEFTAZIDIME [Concomitant]
     Indication: DRUG USE FOR UNKNOWN INDICATION
     Dates: start: 20060907, end: 20060908
  29. CIPROXAN [Concomitant]
     Indication: DRUG USE FOR UNKNOWN INDICATION
     Dates: start: 20060909
  30. ZITHROMAX [Concomitant]
     Indication: DRUG USE FOR UNKNOWN INDICATION
     Route: 048
     Dates: start: 20060909, end: 20060910
  31. SULBACTAM SODIUM [Concomitant]
     Indication: DRUG USE FOR UNKNOWN INDICATION
     Dates: start: 20060919, end: 20060921
  32. TAZOCIN [Concomitant]
     Route: 048
     Dates: start: 20060919, end: 20060921
  33. TIENAM [Concomitant]
     Indication: DRUG USE FOR UNKNOWN INDICATION
     Route: 041
     Dates: start: 20060922, end: 20060924
  34. TIENAM [Concomitant]
     Route: 041
     Dates: start: 20060929, end: 20061001
  35. VANCOMYCIN [Concomitant]
     Indication: DRUG USE FOR UNKNOWN INDICATION
     Route: 041
     Dates: start: 20080925, end: 20080928
  36. VFEND [Concomitant]
     Indication: DRUG USE FOR UNKNOWN INDICATION

REACTIONS (5)
  - BONE MARROW FAILURE [None]
  - CYTOMEGALOVIRUS ANTIGEN POSITIVE [None]
  - NEPHROPATHY TOXIC [None]
  - PNEUMOCYSTIS JIROVECI PNEUMONIA [None]
  - PULMONARY ALVEOLAR HAEMORRHAGE [None]
